FAERS Safety Report 9908797 (Version 1)
Quarter: 2014Q1

REPORT INFORMATION
  Report Type: Spontaneous
  Country: US (occurrence: US)
  Receive Date: 20140219
  Receipt Date: 20140219
  Transmission Date: 20141002
  Serious: No
  Sender: FDA-Public Use
  Company Number: US-PFIZER INC-2014047217

PATIENT
  Sex: Female

DRUGS (1)
  1. LYRICA [Suspect]
     Dosage: UNK
     Route: 048

REACTIONS (8)
  - Gastrooesophageal reflux disease [Unknown]
  - Dyspepsia [Unknown]
  - Menopause [Unknown]
  - Hyperhidrosis [Unknown]
  - Malaise [Unknown]
  - Foreign body [Unknown]
  - Pain [Unknown]
  - Drug ineffective [Unknown]
